FAERS Safety Report 6573742-X (Version None)
Quarter: 2010Q1

REPORT INFORMATION
  Report Type: 
  Country: None (occurrence: None)
  Receive Date: 20100208
  Receipt Date: 20100128
  Transmission Date: 20100710
  Serious: Yes (Hospitalization)
  Sender: FDA-Public Use
  Company Number: B0623414B

PATIENT
  Sex: Male

DRUGS (2)
  1. TOPOTECAN [Suspect]
     Indication: NEOPLASM
     Dosage: .35MG PER DAY
     Route: 042
     Dates: start: 20091029
  2. TEMOZOLOMIDE [Suspect]
     Indication: NEOPLASM
     Dosage: 70MG PER DAY
     Route: 048
     Dates: start: 20091029

REACTIONS (3)
  - DIARRHOEA [None]
  - FEBRILE BONE MARROW APLASIA [None]
  - PYREXIA [None]
